FAERS Safety Report 24555262 (Version 1)
Quarter: 2024Q4

REPORT INFORMATION
  Report Type: Spontaneous
  Country: US (occurrence: US)
  Receive Date: 20241028
  Receipt Date: 20241028
  Transmission Date: 20250115
  Serious: No
  Sender: TEVA
  Company Number: US-TEVA-VS-3254434

PATIENT
  Age: 64 Year
  Sex: Female

DRUGS (3)
  1. COPAXONE [Suspect]
     Active Substance: GLATIRAMER ACETATE
     Indication: Product used for unknown indication
     Dosage: STRENGTH: UNKNOWN
     Route: 065
  2. OCREVUS [Concomitant]
     Active Substance: OCRELIZUMAB
  3. ATENOLOL [Concomitant]
     Active Substance: ATENOLOL

REACTIONS (4)
  - Anxiety [Unknown]
  - Influenza [Unknown]
  - Pain [Unknown]
  - Feeling abnormal [Unknown]
